FAERS Safety Report 22010066 (Version 1)
Quarter: 2023Q1

REPORT INFORMATION
  Report Type: Spontaneous
  Country: CA (occurrence: None)
  Receive Date: 20230220
  Receipt Date: 20230220
  Transmission Date: 20230418
  Serious: Yes (Other)
  Sender: FDA-Public Use
  Company Number: CA-PFIZER INC-202300070338

PATIENT
  Age: 20 Year
  Sex: Female

DRUGS (4)
  1. METHOTREXATE [Suspect]
     Active Substance: METHOTREXATE
     Indication: Product used for unknown indication
     Route: 065
  2. FOLIC ACID [Concomitant]
     Active Substance: FOLIC ACID
     Route: 065
  3. PLAQUENIL [Concomitant]
     Active Substance: HYDROXYCHLOROQUINE SULFATE
     Route: 065
  4. VITAMIN D NOS [Concomitant]
     Active Substance: VITAMIN D NOS
     Route: 065

REACTIONS (1)
  - C-reactive protein increased [Not Recovered/Not Resolved]
